FAERS Safety Report 4284169-8 (Version None)
Quarter: 2004Q1

REPORT INFORMATION
  Report Type: 
  Country: None (occurrence: None)
  Receive Date: 20040203
  Receipt Date: 20040202
  Transmission Date: 20041129
  Serious: Yes (Other)
  Sender: FDA-Public Use
  Company Number: DE-GLAXOSMITHKLINE-D0043012A

PATIENT
  Age: 44 Year
  Sex: Female
  Weight: 61 kg

DRUGS (2)
  1. QUILONUM RETARD [Suspect]
     Dosage: 450MG TWENTY TIMES PER DAY
     Route: 048
     Dates: start: 20040131
  2. TAVOR [Suspect]
     Dosage: .5MG TWENTY TIMES PER DAY
     Route: 048
     Dates: start: 20040131

REACTIONS (3)
  - SUICIDAL IDEATION [None]
  - SUICIDE ATTEMPT [None]
  - VOMITING [None]
